FAERS Safety Report 7129778-3 (Version None)
Quarter: 2010Q4

REPORT INFORMATION
  Report Type: 
  Country: None (occurrence: None)
  Receive Date: 20101130
  Receipt Date: 20101123
  Transmission Date: 20110411
  Serious: Yes (Hospitalization)
  Sender: FDA-Public Use
  Company Number: US-MERCK-1011USA03296

PATIENT
  Age: 72 Year
  Sex: Female

DRUGS (1)
  1. JANUMET [Suspect]
     Indication: TYPE 2 DIABETES MELLITUS
     Route: 048
     Dates: start: 20090101

REACTIONS (2)
  - KNEE ARTHROPLASTY [None]
  - RENAL FAILURE [None]
